FAERS Safety Report 5847557-1 (Version None)
Quarter: 2008Q3

REPORT INFORMATION
  Report Type: 
  Country: None (occurrence: None)
  Receive Date: 20080818
  Receipt Date: 20070731
  Transmission Date: 20090109
  Serious: No
  Sender: FDA-Public Use
  Company Number: US-BAYER-200711947BWH

PATIENT
  Age: 70 Year
  Sex: Male

DRUGS (3)
  1. LEVITRA [Suspect]
     Indication: ERECTILE DYSFUNCTION
     Route: 048
  2. ASPIRIN [Concomitant]
  3. INDERAL [Concomitant]

REACTIONS (1)
  - VISUAL ACUITY REDUCED [None]
